FAERS Safety Report 10249189 (Version 1)
Quarter: 2014Q2

REPORT INFORMATION
  Report Type: Spontaneous
  Country: TR (occurrence: None)
  Receive Date: 20140618
  Receipt Date: 20140618
  Transmission Date: 20141212
  Serious: Yes (Other)
  Sender: FDA-Public Use
  Company Number: 2014EDG00002

PATIENT
  Age: 18 Year
  Sex: Female

DRUGS (1)
  1. FLUOXETINE [Suspect]
     Indication: DEPRESSION

REACTIONS (4)
  - Dissociative identity disorder [None]
  - Accidental overdose [None]
  - Loss of consciousness [None]
  - Toxicity to various agents [None]
